FAERS Safety Report 11411210 (Version 1)
Quarter: 2015Q3

REPORT INFORMATION
  Report Type: Spontaneous
  Country: US (occurrence: US)
  Receive Date: 20150821
  Receipt Date: 20150821
  Transmission Date: 20151125
  Serious: No
  Sender: FDA-Public Use
  Company Number: US-ELI_LILLY_AND_COMPANY-US201005001604

PATIENT
  Age: 46 Year
  Sex: Male

DRUGS (1)
  1. HUMULIN R [Suspect]
     Active Substance: INSULIN HUMAN
     Dosage: UNK, AS NEEDED
     Route: 058
     Dates: start: 2008

REACTIONS (18)
  - Contusion [Unknown]
  - Visual acuity reduced [Not Recovered/Not Resolved]
  - Skin mass [Not Recovered/Not Resolved]
  - Dermatitis [Unknown]
  - Vision blurred [Unknown]
  - Somnolence [Unknown]
  - Dizziness [Unknown]
  - Neuropathy peripheral [Not Recovered/Not Resolved]
  - Injection site discolouration [Unknown]
  - Infusion site pain [Unknown]
  - Neck mass [Unknown]
  - Skin discolouration [Not Recovered/Not Resolved]
  - Skin irritation [Unknown]
  - Blister [Unknown]
  - Depressed mood [Unknown]
  - Blood glucose decreased [Unknown]
  - Sleep apnoea syndrome [Unknown]
  - Paraesthesia [Unknown]

NARRATIVE: CASE EVENT DATE: 2008
